FAERS Safety Report 4751546-8 (Version None)
Quarter: 2005Q3

REPORT INFORMATION
  Report Type: 
  Country: None (occurrence: None)
  Receive Date: 20050824
  Receipt Date: 20041130
  Transmission Date: 20060218
  Serious: Yes (Death)
  Sender: FDA-Public Use
  Company Number: US-GLAXOSMITHKLINE-A0538146A

PATIENT
  Age: 26 Year
  Sex: Female
  Weight: 57.7 kg

DRUGS (6)
  1. SEREVENT [Suspect]
     Indication: ASTHMA
     Dosage: 1PUFF TWICE PER DAY
     Dates: start: 20020301
  2. PREDNISONE [Concomitant]
  3. ALBUTEROL [Concomitant]
  4. NEBULIZER TREATMENT [Concomitant]
  5. ALBUTEROL [Concomitant]
  6. BIRTH CONTROL PILLS [Concomitant]

REACTIONS (9)
  - ASTHMA [None]
  - CARDIAC ARREST [None]
  - CARDIO-RESPIRATORY ARREST [None]
  - DYSPNOEA [None]
  - FALL [None]
  - ILL-DEFINED DISORDER [None]
  - INCREASED VISCOSITY OF BRONCHIAL SECRETION [None]
  - LUNG HYPERINFLATION [None]
  - SUDDEN DEATH [None]
